FAERS Safety Report 11720843 (Version 9)
Quarter: 2016Q3

REPORT INFORMATION
  Report Type: Spontaneous
  Country: US (occurrence: US)
  Receive Date: 20151110
  Receipt Date: 20160915
  Transmission Date: 20161109
  Serious: No
  Sender: FDA-Public Use
  Company Number: US-PFIZER INC-2015152768

PATIENT
  Age: 89 Year
  Sex: Female
  Weight: 65.32 kg

DRUGS (1)
  1. NICOTROL [Suspect]
     Active Substance: NICOTINE
     Indication: SMOKING CESSATION THERAPY
     Dosage: UNK, AS NEEDED
     Route: 055
     Dates: start: 1997

REACTIONS (5)
  - Incorrect drug administration duration [Unknown]
  - Chronic obstructive pulmonary disease [Unknown]
  - Poor quality drug administered [Unknown]
  - Glossitis [Unknown]
  - Product quality issue [Unknown]
